FAERS Safety Report 6918738-0 (Version None)
Quarter: 2010Q3

REPORT INFORMATION
  Report Type: 
  Country: None (occurrence: None)
  Receive Date: 20100811
  Receipt Date: 20100727
  Transmission Date: 20110219
  Serious: Yes (Other)
  Sender: FDA-Public Use
  Company Number: PHHY2010BR49908

PATIENT
  Age: 43 Year
  Sex: Female
  Weight: 70 kg

DRUGS (4)
  1. ZELMAC [Suspect]
     Indication: IRRITABLE BOWEL SYNDROME
     Dosage: 6 MG, ONE TABLET TWICE A DAY
     Route: 048
  2. ZELMAC [Suspect]
     Dosage: 6 MG, ONE TABLETPER DAY
     Route: 048
     Dates: start: 20100722
  3. MESALAZINE [Suspect]
     Indication: IRRITABLE BOWEL SYNDROME
     Dosage: 400 MG, ONE TABLET THREE TIMES A DAY
     Route: 048
  4. DICETEL [Suspect]
     Indication: IRRITABLE BOWEL SYNDROME
     Dosage: 100 MG, ONE TABLET TWICE A DAY
     Route: 048

REACTIONS (4)
  - BONE PAIN [None]
  - DIVERTICULITIS [None]
  - INTERVERTEBRAL DISC PROTRUSION [None]
  - PROCTITIS [None]
